FAERS Safety Report 9837949 (Version 3)
Quarter: 2014Q2

REPORT INFORMATION
  Report Type: Spontaneous
  Country: US (occurrence: US)
  Receive Date: 20140123
  Receipt Date: 20140509
  Transmission Date: 20141212
  Serious: Yes (Other)
  Sender: FDA-Public Use
  Company Number: US-BAYER-2014-010284

PATIENT
  Age: 37 Year
  Sex: Female
  Weight: 63.49 kg

DRUGS (13)
  1. MIRENA [Suspect]
     Indication: CONTRACEPTION
     Dosage: 20 MCG/24HR, CONT
     Route: 015
     Dates: start: 20080527, end: 20130603
  2. MIRENA [Suspect]
     Indication: MENORRHAGIA
  3. CYANOCOBALAMIN [Concomitant]
     Dosage: 1000 MCG MONTHLY
     Route: 030
  4. CYPROHEPTADINE [Concomitant]
     Dosage: 4 MG, UNK
  5. KLONOPIN [Concomitant]
     Dosage: 1 MG, UNK
  6. NEURONTIN [Concomitant]
     Dosage: 400 MG, UNK
  7. NEXIUM [Concomitant]
     Dosage: 40 MG, UNK
  8. REMERON [Concomitant]
     Dosage: 15 MG, UNK
  9. SINGULAIR [Concomitant]
     Dosage: 10 MG, UNK
  10. VISTARIL [Concomitant]
     Dosage: 25 MG, UNK
  11. ZOLOFT [Concomitant]
     Dosage: 100 MG, UNK
  12. CIPRO [Concomitant]
  13. PYRIDIUM [Concomitant]

REACTIONS (8)
  - Device difficult to use [None]
  - Device dislocation [None]
  - Device issue [None]
  - Device misuse [None]
  - Abdominal distension [None]
  - Injury [None]
  - Pain [None]
  - Emotional distress [None]
